FAERS Safety Report 19651613 (Version 1)
Quarter: 2021Q3

REPORT INFORMATION
  Report Type: Spontaneous
  Country: LB (occurrence: LB)
  Receive Date: 20210803
  Receipt Date: 20210803
  Transmission Date: 20211014
  Serious: Yes (Other)
  Sender: FDA-Public Use
  Company Number: LB-JNJFOC-20210802045

PATIENT

DRUGS (25)
  1. REMICADE [Suspect]
     Active Substance: INFLIXIMAB
     Indication: TAKAYASU^S ARTERITIS
  2. REMICADE [Suspect]
     Active Substance: INFLIXIMAB
     Indication: IRIDOCYCLITIS
  3. REMICADE [Suspect]
     Active Substance: INFLIXIMAB
     Indication: PSORIATIC ARTHROPATHY
  4. REMICADE [Suspect]
     Active Substance: INFLIXIMAB
     Indication: AMYLOIDOSIS
  5. REMICADE [Suspect]
     Active Substance: INFLIXIMAB
     Indication: MYOSITIS
  6. REMICADE [Suspect]
     Active Substance: INFLIXIMAB
     Indication: RHEUMATOID ARTHRITIS
     Dosage: THE DOSE OF INFLIXIMAB RANGED FROM 100 MG TO 600 MG, WITH A MEAN OF 316.38 MG   14.74 MG. ALTHOUGH T
     Route: 042
  7. REMICADE [Suspect]
     Active Substance: INFLIXIMAB
     Indication: INFLAMMATORY BOWEL DISEASE
  8. REMICADE [Suspect]
     Active Substance: INFLIXIMAB
     Indication: SYSTEMIC LUPUS ERYTHEMATOSUS
  9. REMICADE [Suspect]
     Active Substance: INFLIXIMAB
     Indication: STILL^S DISEASE
  10. REMICADE [Suspect]
     Active Substance: INFLIXIMAB
     Indication: DEAFNESS
  11. REMICADE [Suspect]
     Active Substance: INFLIXIMAB
     Indication: SPONDYLITIS
  12. REMICADE [Suspect]
     Active Substance: INFLIXIMAB
     Indication: CUTANEOUS VASCULITIS
  13. REMICADE [Suspect]
     Active Substance: INFLIXIMAB
     Indication: IMMUNODEFICIENCY COMMON VARIABLE
  14. REMICADE [Suspect]
     Active Substance: INFLIXIMAB
     Indication: ANKYLOSING SPONDYLITIS
  15. REMICADE [Suspect]
     Active Substance: INFLIXIMAB
     Indication: BEHCET^S SYNDROME
  16. REMICADE [Suspect]
     Active Substance: INFLIXIMAB
     Indication: SARCOIDOSIS
  17. REMICADE [Suspect]
     Active Substance: INFLIXIMAB
     Indication: POLYARTHRITIS
  18. REMICADE [Suspect]
     Active Substance: INFLIXIMAB
     Indication: POLYCHONDRITIS
  19. REMICADE [Suspect]
     Active Substance: INFLIXIMAB
     Indication: MIXED CONNECTIVE TISSUE DISEASE
  20. REMICADE [Suspect]
     Active Substance: INFLIXIMAB
     Indication: SJOGREN^S SYNDROME
  21. REMICADE [Suspect]
     Active Substance: INFLIXIMAB
     Indication: PYODERMA GANGRENOSUM
  22. REMICADE [Suspect]
     Active Substance: INFLIXIMAB
     Indication: SCLERODERMA
  23. REMICADE [Suspect]
     Active Substance: INFLIXIMAB
     Indication: GIANT CELL ARTERITIS
  24. REMICADE [Suspect]
     Active Substance: INFLIXIMAB
     Indication: UVEITIS
  25. REMICADE [Suspect]
     Active Substance: INFLIXIMAB
     Indication: SJOGREN^S SYNDROME

REACTIONS (11)
  - Bladder transitional cell carcinoma [Unknown]
  - Idiopathic pulmonary fibrosis [Unknown]
  - Product use in unapproved indication [Unknown]
  - Drug ineffective [Unknown]
  - Tuberculosis [Unknown]
  - Infusion related reaction [Unknown]
  - Exposure during pregnancy [Unknown]
  - Respiratory tract infection [Unknown]
  - Off label use [Unknown]
  - Drug hypersensitivity [Unknown]
  - Non-Hodgkin^s lymphoma [Unknown]
